FAERS Safety Report 9749357 (Version 1)
Quarter: 2013Q4

REPORT INFORMATION
  Report Type: Spontaneous
  Country: KR (occurrence: None)
  Receive Date: 20131209
  Receipt Date: 20131209
  Transmission Date: 20140711
  Serious: Yes (Other)
  Sender: FDA-Public Use
  Company Number: 2013P1021555

PATIENT
  Sex: 0

DRUGS (1)
  1. AMIODARONE [Suspect]

REACTIONS (4)
  - Pulmonary toxicity [None]
  - Multi-organ disorder [None]
  - Pneumonia [None]
  - Pulmonary haemorrhage [None]
